FAERS Safety Report 5086616-0 (Version None)
Quarter: 2006Q3

REPORT INFORMATION
  Report Type: 
  Country: None (occurrence: None)
  Receive Date: 20060823
  Receipt Date: 20050908
  Transmission Date: 20061208
  Serious: Yes (Death, Hospitalization)
  Sender: FDA-Public Use
  Company Number: PHHO2005JP14174

PATIENT
  Age: 52 Year
  Sex: Male

DRUGS (2)
  1. GLEEVEC [Suspect]
     Indication: GASTROINTESTINAL STROMAL TUMOUR
     Dosage: 400 MG, QD
     Route: 048
     Dates: start: 20031203, end: 20041027
  2. GLEEVEC [Suspect]
     Dosage: 300 MG, QD
     Route: 048
     Dates: start: 20041028, end: 20050820

REACTIONS (5)
  - GENERALISED OEDEMA [None]
  - HYPOALBUMINAEMIA [None]
  - OEDEMA PERIPHERAL [None]
  - PANCYTOPENIA [None]
  - PNEUMONIA [None]
